FAERS Safety Report 11461965 (Version 1)
Quarter: 2015Q3

REPORT INFORMATION
  Report Type: Spontaneous
  Country: US (occurrence: US)
  Receive Date: 20150831
  Receipt Date: 20150831
  Transmission Date: 20151125
  Serious: No
  Sender: FDA-Public Use
  Company Number: US-ELI_LILLY_AND_COMPANY-US200910002349

PATIENT
  Sex: Female

DRUGS (3)
  1. NEURONTIN [Concomitant]
     Active Substance: GABAPENTIN
     Dosage: 1200 MG, DAILY (1/D)
  2. CYMBALTA [Suspect]
     Active Substance: DULOXETINE HYDROCHLORIDE
     Indication: ANXIETY
     Dosage: 120 MG, DAILY (1/D)
     Dates: start: 2008
  3. CYMBALTA [Suspect]
     Active Substance: DULOXETINE HYDROCHLORIDE
     Dosage: 180 MG, DAILY (1/D)
     Dates: end: 200909

REACTIONS (17)
  - Pain in extremity [Not Recovered/Not Resolved]
  - Gait disturbance [Unknown]
  - Paraesthesia [Unknown]
  - Peripheral coldness [Unknown]
  - Neck pain [Not Recovered/Not Resolved]
  - Musculoskeletal stiffness [Unknown]
  - Mobility decreased [Unknown]
  - Neuralgia [Unknown]
  - Myalgia [Unknown]
  - Drug withdrawal syndrome [Unknown]
  - Memory impairment [Unknown]
  - Pain in extremity [Unknown]
  - Hypoaesthesia [Unknown]
  - Overdose [Recovered/Resolved]
  - Musculoskeletal pain [Unknown]
  - Dizziness [Unknown]
  - Medication error [Recovered/Resolved]
